FAERS Safety Report 5702184-1 (Version None)
Quarter: 2008Q2

REPORT INFORMATION
  Report Type: 
  Country: None (occurrence: None)
  Receive Date: 20080411
  Receipt Date: 20080404
  Transmission Date: 20081010
  Serious: Yes (Death)
  Sender: FDA-Public Use
  Company Number: US-ROCHE-554518

PATIENT
  Sex: Female

DRUGS (2)
  1. VALGANCICLOVIR HCL [Suspect]
     Indication: INFECTION PROPHYLAXIS
     Dosage: FORM: PILL
     Route: 065
     Dates: start: 20070328, end: 20080110
  2. INSULIN [Concomitant]
     Dates: start: 19950101

REACTIONS (2)
  - CORONARY ARTERY BYPASS [None]
  - GASTRIC DISORDER [None]
